FAERS Safety Report 18774404 (Version 6)
Quarter: 2022Q3

REPORT INFORMATION
  Report Type: Other
  Country: US (occurrence: None)
  Receive Date: 20210122
  Receipt Date: 20220810
  Transmission Date: 20221026
  Serious: Yes (Hospitalization, Other)
  Sender: FDA-Public Use
  Company Number: US-ROCHE-2753091

PATIENT
  Sex: Male
  Weight: 84.898 kg

DRUGS (27)
  1. OCREVUS [Suspect]
     Active Substance: OCRELIZUMAB
     Indication: Primary progressive multiple sclerosis
     Route: 042
     Dates: start: 20190912
  2. OCREVUS [Suspect]
     Active Substance: OCRELIZUMAB
     Dosage: THEN 600 MG EVERY 6 MONTHS
     Route: 042
     Dates: start: 20180222
  3. OCREVUS [Suspect]
     Active Substance: OCRELIZUMAB
     Dosage: DATE OF TREATMENT: 22/FEB/2018, 09/MAR/2018, 23/AUG/2018, 13/APR/2021,  28/OCT/2021, 29/OCT/2021,29/
     Route: 065
     Dates: start: 2017
  4. POTASSIUM CITRATE [Concomitant]
     Active Substance: POTASSIUM CITRATE
     Indication: Nephrolithiasis
     Route: 048
  5. GLIMEPIRIDE [Concomitant]
     Active Substance: GLIMEPIRIDE
     Route: 048
     Dates: start: 2019
  6. ALLOPURINOL [Concomitant]
     Active Substance: ALLOPURINOL
     Dosage: TAKE 1 TABLET
     Route: 048
     Dates: start: 202007
  7. FENOFIBRATE [Concomitant]
     Active Substance: FENOFIBRATE
     Indication: Blood cholesterol
     Route: 048
     Dates: start: 202007
  8. ZOFRAN [Concomitant]
     Active Substance: ONDANSETRON HYDROCHLORIDE
     Indication: Nausea
     Dosage: AS NEEDED FOR NAUSEA
     Route: 048
  9. COREG [Concomitant]
     Active Substance: CARVEDILOL
     Indication: Hypertension
     Route: 048
     Dates: start: 2011
  10. XANAX [Concomitant]
     Active Substance: ALPRAZOLAM
     Indication: Panic attack
     Route: 048
  11. ZALEPLON [Concomitant]
     Active Substance: ZALEPLON
     Indication: Insomnia
     Route: 048
  12. DEXAMETHASONE [Concomitant]
     Active Substance: DEXAMETHASONE
     Indication: Premedication
     Dosage: GOT PRIOR TO INFUSION
     Route: 042
     Dates: start: 20190912
  13. METHYLPREDNISOLONE SODIUM SUCCINATE [Concomitant]
     Active Substance: METHYLPREDNISOLONE SODIUM SUCCINATE
  14. DIPHENHYDRAMINE HYDROCHLORIDE [Concomitant]
     Active Substance: DIPHENHYDRAMINE HYDROCHLORIDE
  15. ALPRAZOLAM [Concomitant]
     Active Substance: ALPRAZOLAM
     Dosage: TAKE 1 TABLET
     Route: 048
  16. FLUTICASONE PROPIONATE [Concomitant]
     Active Substance: FLUTICASONE PROPIONATE
     Dosage: 50 MCG ACTUATION NASAL SPRAY SUSPENSION, SPRAY ONE SPRAY IN EACH NOSTRIL
  17. FENOFIBRATE [Concomitant]
     Active Substance: FENOFIBRATE
     Dosage: TAKE 1 CAPSULE BY MOUTH EVERY DAY WITH FOOD
     Route: 048
  18. GABAPENTIN [Concomitant]
     Active Substance: GABAPENTIN
     Dosage: TAKE ONE TABLET AT BEDTIME FOR ONE WEEK THEN ADVANCE TO BID THERE AFTER
  19. GLIMEPIRIDE [Concomitant]
     Active Substance: GLIMEPIRIDE
     Route: 048
  20. ONDANSETRON HCL [Concomitant]
     Active Substance: ONDANSETRON HYDROCHLORIDE
     Indication: Nausea
     Dosage: TK 2 TS PO Q 6 H PRF
     Route: 048
  21. ONDANSETRON HCL [Concomitant]
     Active Substance: ONDANSETRON HYDROCHLORIDE
     Indication: Vomiting
  22. POTASSIUM CITRATE [Concomitant]
     Active Substance: POTASSIUM CITRATE
     Route: 048
  23. RIZATRIPTAN [Concomitant]
     Active Substance: RIZATRIPTAN
     Dosage: TAKE 1 TABLET AT A ONSET OF MIGRAINE CAN REPEAT A 2ND TABLET WITHIN 4 HOURS IF NO RELIEF. DO NOT EXC
     Route: 048
  24. ZOLPIDEM [Concomitant]
     Active Substance: ZOLPIDEM TARTRATE
     Dosage: TAKE 1 TABLET BY MOUTH EVERY DAY AT BEDTIME AS NEEDED
     Route: 048
  25. KEFLEX [Concomitant]
     Active Substance: CEPHALEXIN
  26. DOXYCYCLINE [Concomitant]
     Active Substance: DOXYCYCLINE
  27. BACLOFEN [Concomitant]
     Active Substance: BACLOFEN

REACTIONS (16)
  - Clostridium difficile infection [Recovered/Resolved]
  - Renal failure [Recovered/Resolved]
  - Cholecystitis infective [Recovered/Resolved]
  - Weight increased [Not Recovered/Not Resolved]
  - Headache [Not Recovered/Not Resolved]
  - Nausea [Not Recovered/Not Resolved]
  - Fall [Unknown]
  - Joint swelling [Unknown]
  - Infection [Unknown]
  - Chills [Unknown]
  - Night sweats [Unknown]
  - Vision blurred [Unknown]
  - Arthralgia [Unknown]
  - Feeling hot [Unknown]
  - Gait disturbance [Recovered/Resolved]
  - Asthenia [Not Recovered/Not Resolved]

NARRATIVE: CASE EVENT DATE: 20190101
